FAERS Safety Report 9513074 (Version 1)
Quarter: 2013Q3

REPORT INFORMATION
  Report Type: Spontaneous
  Country: ES (occurrence: ES)
  Receive Date: 20130910
  Receipt Date: 20130910
  Transmission Date: 20140515
  Serious: Yes (Hospitalization)
  Sender: FDA-Public Use
  Company Number: ES-PFIZER INC-2013255747

PATIENT
  Age: 28 Year
  Sex: Male

DRUGS (4)
  1. CISPLATIN [Suspect]
     Indication: SALIVARY GLAND CANCER
     Dosage: ONE CYCLE
  2. DOCETAXEL [Suspect]
     Indication: SALIVARY GLAND CANCER
     Dosage: ONE CYCLE
  3. FLUOROURACIL [Suspect]
     Indication: SALIVARY GLAND CANCER
     Dosage: ONE CYCLE
  4. CARBOPLATIN [Concomitant]
     Indication: SALIVARY GLAND CANCER
     Dosage: WEEKLY, UNK

REACTIONS (1)
  - Febrile neutropenia [Unknown]
